FAERS Safety Report 12559228 (Version 2)
Quarter: 2016Q3

REPORT INFORMATION
  Report Type: Report from Study
  Country: AU (occurrence: AU)
  Receive Date: 20160715
  Receipt Date: 20160728
  Transmission Date: 20161109
  Serious: Yes (Death, Other)
  Sender: FDA-Public Use
  Company Number: AU-ROCHE-1784793

PATIENT
  Age: 74 Year
  Sex: Male

DRUGS (2)
  1. ALTEPLASE [Suspect]
     Active Substance: ALTEPLASE
     Indication: ISCHAEMIC STROKE
     Route: 040
  2. ALTEPLASE [Suspect]
     Active Substance: ALTEPLASE
     Route: 042

REACTIONS (4)
  - Hypotension [Recovered/Resolved]
  - Cerebral haemorrhage [Fatal]
  - Haematuria [Recovered/Resolved]
  - Subarachnoid haemorrhage [Fatal]

NARRATIVE: CASE EVENT DATE: 20130821
